FAERS Safety Report 10075592 (Version 2)
Quarter: 2014Q2

REPORT INFORMATION
  Report Type: Spontaneous
  Country: DE (occurrence: DE)
  Receive Date: 20140414
  Receipt Date: 20140529
  Transmission Date: 20141212
  Serious: Yes (Other)
  Sender: FDA-Public Use
  Company Number: DE-JNJFOC-20140406725

PATIENT
  Age: 70 Year
  Sex: Male
  Weight: 74 kg

DRUGS (3)
  1. XARELTO [Suspect]
     Indication: CEREBROVASCULAR ACCIDENT PROPHYLAXIS
     Route: 048
  2. XARELTO [Suspect]
     Indication: ATRIAL FIBRILLATION
     Route: 048
  3. QUILONIUM-R [Concomitant]
     Route: 065

REACTIONS (4)
  - Fall [Recovering/Resolving]
  - Ataxia [Recovering/Resolving]
  - Intention tremor [Recovering/Resolving]
  - Tinnitus [Recovering/Resolving]
